FAERS Safety Report 7965066-0 (Version None)
Quarter: 2011Q4

REPORT INFORMATION
  Report Type: 
  Country: None (occurrence: None)
  Receive Date: 20111208
  Receipt Date: 20111201
  Transmission Date: 20120403
  Serious: Yes (Death)
  Sender: FDA-Public Use
  Company Number: DE-BAYER-2011-115652

PATIENT
  Age: 73 Year
  Sex: Male
  Weight: 85 kg

DRUGS (5)
  1. AVELOX [Suspect]
     Indication: INFECTION
     Dosage: 400 MG, UNK
     Route: 048
     Dates: start: 20110913, end: 20110915
  2. UNASYN [Concomitant]
     Indication: INFECTION
     Dosage: 3 G, UNK
     Route: 042
     Dates: start: 20110913, end: 20110915
  3. PLAVIX [Concomitant]
     Indication: CORONARY ARTERY DISEASE
     Dosage: 75 MG, UNK
     Route: 048
     Dates: start: 20110812, end: 20110915
  4. ASPIRIN [Concomitant]
     Indication: CORONARY ARTERY DISEASE
     Dosage: 100 MG, UNK
     Route: 048
     Dates: end: 20110915
  5. PANTOPRAZOLE SODIUM [Suspect]
     Indication: GASTRITIS
     Dosage: 80 MG, UNK
     Route: 048
     Dates: start: 20110914, end: 20110915

REACTIONS (1)
  - COMPLETED SUICIDE [None]
